FAERS Safety Report 5852568-6 (Version None)
Quarter: 2008Q3

REPORT INFORMATION
  Report Type: 
  Country: None (occurrence: None)
  Receive Date: 20080819
  Receipt Date: 20080806
  Transmission Date: 20090109
  Serious: Yes (Hospitalization, Other)
  Sender: FDA-Public Use
  Company Number: 51360

PATIENT
  Age: 2 Year
  Sex: Female

DRUGS (1)
  1. ETOPOSIDE [Suspect]
     Indication: HISTIOCYTOSIS HAEMATOPHAGIC

REACTIONS (2)
  - AXONAL NEUROPATHY [None]
  - PARAPLEGIA [None]
